FAERS Safety Report 12677389 (Version 3)
Quarter: 2016Q3

REPORT INFORMATION
  Report Type: Report from Study
  Country: CA (occurrence: CA)
  Receive Date: 20160823
  Receipt Date: 20160914
  Transmission Date: 20161109
  Serious: Yes (Other)
  Sender: FDA-Public Use
  Company Number: CA-TAKEDA-2016TUS014246

PATIENT
  Age: 46 Year
  Sex: Female

DRUGS (2)
  1. VEDOLIZUMAB [Suspect]
     Active Substance: VEDOLIZUMAB
     Indication: COLITIS ULCERATIVE
     Dosage: 300 MG, UNK
     Route: 042
     Dates: start: 20150727
  2. ASACOL [Concomitant]
     Active Substance: MESALAMINE
     Dosage: UNK, QD

REACTIONS (8)
  - Muscular weakness [Unknown]
  - Asthenia [Unknown]
  - Hypoaesthesia [Unknown]
  - Fatigue [Unknown]
  - Gait disturbance [Unknown]
  - Hemiparesis [Unknown]
  - Balance disorder [Unknown]
  - Pain in extremity [Unknown]

NARRATIVE: CASE EVENT DATE: 20160614
